FAERS Safety Report 7683840-5 (Version None)
Quarter: 2011Q3

REPORT INFORMATION
  Report Type: 
  Country: None (occurrence: None)
  Receive Date: 20110815
  Receipt Date: 20110811
  Transmission Date: 20111222
  Serious: Yes (Other)
  Sender: FDA-Public Use
  Company Number: US-BAYER-2011-072061

PATIENT
  Age: 32 Year
  Sex: Female

DRUGS (3)
  1. DROSPIRENONE AND ETHINYL ESTRADIOL [Suspect]
     Dosage: UNK
     Dates: start: 20090501, end: 20101201
  2. YAZ [Suspect]
     Dosage: UNK
     Dates: start: 20100501, end: 20101201
  3. YASMIN [Suspect]
     Dosage: UNK
     Dates: start: 20090501, end: 20091201

REACTIONS (4)
  - CEREBROVASCULAR ACCIDENT [None]
  - INJURY [None]
  - PULMONARY EMBOLISM [None]
  - PAIN [None]
